FAERS Safety Report 22284751 (Version 1)
Quarter: 2023Q2

REPORT INFORMATION
  Report Type: Spontaneous
  Country: US (occurrence: None)
  Receive Date: 20230503
  Receipt Date: 20230503
  Transmission Date: 20230721
  Serious: Yes (Hospitalization)
  Sender: FDA-Public Use
  Company Number: None

PATIENT
  Age: 74 Year
  Sex: Male

DRUGS (16)
  1. INLYTA [Suspect]
     Active Substance: AXITINIB
     Indication: Renal cancer
     Dosage: FREQUENCY : TWICE A DAY;?
     Route: 048
     Dates: start: 202303
  2. ATORVASTATIN [Concomitant]
  3. DEXAMETHASONE [Concomitant]
     Active Substance: DEXAMETHASONE
  4. DOCUSATE [Concomitant]
     Active Substance: DOCUSATE
  5. DOXYCYCLINE [Concomitant]
     Active Substance: DOXYCYCLINE
  6. DULOXETINE [Concomitant]
     Active Substance: DULOXETINE
  7. ELIQUIS [Concomitant]
     Active Substance: APIXABAN
  8. FENTANYL [Concomitant]
     Active Substance: FENTANYL
  9. LOSARTAN [Concomitant]
     Active Substance: LOSARTAN
  10. OMEPRAZOLE [Concomitant]
     Active Substance: OMEPRAZOLE
  11. PERCOCET [Concomitant]
     Active Substance: ACETAMINOPHEN\OXYCODONE HYDROCHLORIDE
  12. PANTOPRAZOLE [Concomitant]
  13. PREGABALIN [Concomitant]
     Active Substance: PREGABALIN
  14. SODIUM [Concomitant]
     Active Substance: SODIUM
  15. CHLORIDE ION [Concomitant]
     Active Substance: CHLORIDE ION
  16. SUCRALFATE [Concomitant]

REACTIONS (3)
  - Dysphagia [None]
  - Asthenia [None]
  - Weight decreased [None]
